FAERS Safety Report 16489175 (Version 2)
Quarter: 2019Q3

REPORT INFORMATION
  Report Type: Report from Study
  Country: US (occurrence: US)
  Receive Date: 20190628
  Receipt Date: 20190805
  Transmission Date: 20191004
  Serious: Yes (Hospitalization)
  Sender: FDA-Public Use
  Company Number: PHEH2019US026856

PATIENT
  Age: 81 Year
  Sex: Male

DRUGS (1)
  1. PROMACTA [Suspect]
     Active Substance: ELTROMBOPAG OLAMINE
     Indication: APLASTIC ANAEMIA
     Dosage: 150 MG, UNK
     Route: 048

REACTIONS (4)
  - Bacterial infection [Unknown]
  - Pyrexia [Unknown]
  - Febrile neutropenia [Recovering/Resolving]
  - Systemic candida [Recovered/Resolved]

NARRATIVE: CASE EVENT DATE: 20190501
